FAERS Safety Report 4613860-6 (Version None)
Quarter: 2005Q1

REPORT INFORMATION
  Report Type: 
  Country: None (occurrence: None)
  Receive Date: 20050316
  Receipt Date: 20050228
  Transmission Date: 20050727
  Serious: Yes (Disabling)
  Sender: FDA-Public Use
  Company Number: 2005-SW-00095DB

PATIENT
  Age: 83 Year
  Sex: Female

DRUGS (1)
  1. PERSANTIN [Suspect]
     Dosage: 400 MG (200 MG, 1 IN 12 HR) PO
     Route: 048
     Dates: start: 20020101, end: 20040901

REACTIONS (3)
  - APTYALISM [None]
  - ORAL MUCOSA ATROPHY [None]
  - TONGUE ATROPHY [None]
